FAERS Safety Report 6515959-6 (Version None)
Quarter: 2009Q4

REPORT INFORMATION
  Report Type: 
  Country: None (occurrence: None)
  Receive Date: 20091223
  Receipt Date: 20091217
  Transmission Date: 20100525
  Serious: Yes (Death)
  Sender: FDA-Public Use
  Company Number: US-AMGEN-US377240

PATIENT
  Sex: Male

DRUGS (3)
  1. NPLATE [Suspect]
     Indication: IDIOPATHIC THROMBOCYTOPENIC PURPURA
     Dates: start: 20091120, end: 20091120
  2. CORTICOSTEROID NOS [Concomitant]
     Dates: start: 20091103
  3. RITUXIMAB [Concomitant]
     Dates: start: 20091110

REACTIONS (1)
  - DEATH [None]
